FAERS Safety Report 20789676 (Version 2)
Quarter: 2022Q2

REPORT INFORMATION
  Report Type: Spontaneous
  Country: AR (occurrence: AR)
  Receive Date: 20220505
  Receipt Date: 20220624
  Transmission Date: 20220720
  Serious: No
  Sender: FDA-Public Use
  Company Number: AR-PFIZER INC-202200655162

PATIENT
  Age: 49 Year
  Sex: Female

DRUGS (1)
  1. GENOTROPIN [Suspect]
     Active Substance: SOMATROPIN
     Indication: Growth hormone deficiency
     Dosage: 0.6 MG TO 1 MG, 7 TIMES PER WEEK
     Dates: start: 20130311

REACTIONS (2)
  - Device issue [Unknown]
  - Device use issue [Unknown]
